FAERS Safety Report 9629213 (Version 1)
Quarter: 2013Q4

REPORT INFORMATION
  Report Type: Spontaneous
  Country: US (occurrence: US)
  Receive Date: 20131017
  Receipt Date: 20131017
  Transmission Date: 20140711
  Serious: Yes (Hospitalization)
  Sender: FDA-Public Use
  Company Number: US-ELI_LILLY_AND_COMPANY-US201310002539

PATIENT
  Sex: Female

DRUGS (27)
  1. EFFIENT [Suspect]
     Indication: CORONARY ARTERIAL STENT INSERTION
     Dosage: 10 MG, QD
     Dates: start: 201210
  2. EFFIENT [Suspect]
     Dosage: 10 MG, QD
  3. ASA [Concomitant]
     Dosage: 81 MG, UNK
  4. DEPO-PROVERA [Concomitant]
  5. CARVEDILOL [Concomitant]
  6. LASIX                              /00032601/ [Concomitant]
  7. LISINOPRIL [Concomitant]
  8. NITROGLYCERIN [Concomitant]
     Route: 060
  9. POTASSIUM CHLORIDE [Concomitant]
  10. DIOVAN [Concomitant]
  11. GEMFIBROZIL [Concomitant]
  12. AMITRIPTYLINE [Concomitant]
  13. AMLODIPINE [Concomitant]
  14. CRESTOR [Concomitant]
  15. FLUTICASONE [Concomitant]
  16. LORATADIN [Concomitant]
  17. NIASPAN [Concomitant]
  18. PROMETHAZINE HCL [Concomitant]
  19. TRAMADOL [Concomitant]
  20. TRAZODONE [Concomitant]
  21. VITAMIN D                          /00107901/ [Concomitant]
  22. ATIVAN [Concomitant]
  23. LANTUS [Concomitant]
  24. MELOXICAM [Concomitant]
  25. NEXIUM                             /01479302/ [Concomitant]
  26. NOVOLOG [Concomitant]
  27. AMITIZA [Concomitant]

REACTIONS (1)
  - Uterine leiomyoma [Unknown]
